FAERS Safety Report 8170641-7 (Version None)
Quarter: 2012Q1

REPORT INFORMATION
  Report Type: 
  Country: None (occurrence: None)
  Receive Date: 20120106
  Receipt Date: 20111010
  Transmission Date: 20120608
  Serious: Yes (Other)
  Sender: FDA-Public Use
  Company Number: US-006921

PATIENT
  Age: 73 Year
  Sex: Male

DRUGS (4)
  1. MULTIHANCE [Suspect]
     Indication: DEAFNESS NEUROSENSORY
     Dosage: 15ML INTRAVENOUS (NOT OTHERWISE SPECIFIED)
     Route: 042
     Dates: start: 20110930, end: 20110930
  2. MULTIHANCE [Suspect]
     Indication: TINNITUS
     Dosage: 15ML INTRAVENOUS (NOT OTHERWISE SPECIFIED)
     Route: 042
     Dates: start: 20110930, end: 20110930
  3. MULTIHANCE [Suspect]
     Indication: NUCLEAR MAGNETIC RESONANCE IMAGING
     Dosage: 15ML INTRAVENOUS (NOT OTHERWISE SPECIFIED)
     Route: 042
     Dates: start: 20110930, end: 20110930
  4. MULTIHANCE [Suspect]
     Indication: VERTIGO
     Dosage: 15ML INTRAVENOUS (NOT OTHERWISE SPECIFIED)
     Route: 042
     Dates: start: 20110930, end: 20110930

REACTIONS (1)
  - ANAPHYLACTIC REACTION [None]
